FAERS Safety Report 10744126 (Version 1)
Quarter: 2015Q1

REPORT INFORMATION
  Report Type: Spontaneous
  Country: US (occurrence: US)
  Receive Date: 20150128
  Receipt Date: 20150128
  Transmission Date: 20150721
  Serious: Yes (Hospitalization)
  Sender: FDA-Public Use
  Company Number: US-ROCHE-1525571

PATIENT
  Sex: Female

DRUGS (15)
  1. FOSAMAX [Suspect]
     Active Substance: ALENDRONATE SODIUM
     Indication: OSTEOPENIA
  2. ACTONEL [Suspect]
     Active Substance: RISEDRONATE SODIUM
     Indication: OSTEOPENIA
     Route: 048
     Dates: start: 20090128, end: 200902
  3. ACTONEL [Suspect]
     Active Substance: RISEDRONATE SODIUM
     Indication: OSTEOPOROSIS
     Route: 048
     Dates: start: 20040228
  4. DIOVAN [Suspect]
     Active Substance: VALSARTAN
     Indication: OSTEOPENIA
  5. WELLBUTRIN [Concomitant]
     Active Substance: BUPROPION HYDROCHLORIDE
  6. PRAVASTATIN [Concomitant]
     Active Substance: PRAVASTATIN\PRAVASTATIN SODIUM
  7. BONIVA [Suspect]
     Active Substance: IBANDRONATE SODIUM
     Indication: OSTEOPOROSIS
     Route: 048
     Dates: start: 200902, end: 201008
  8. LOVASTATIN. [Concomitant]
     Active Substance: LOVASTATIN
  9. ASPIRIN. [Concomitant]
     Active Substance: ASPIRIN
  10. DIOVAN [Suspect]
     Active Substance: VALSARTAN
     Indication: OSTEOPOROSIS
     Route: 065
  11. CALAN [Concomitant]
     Active Substance: VERAPAMIL HYDROCHLORIDE
  12. PLAVIX [Concomitant]
     Active Substance: CLOPIDOGREL BISULFATE
  13. TOPROL XL [Concomitant]
     Active Substance: METOPROLOL SUCCINATE
  14. BONIVA [Suspect]
     Active Substance: IBANDRONATE SODIUM
     Indication: OSTEOPENIA
     Route: 065
     Dates: start: 200510, end: 200901
  15. FOSAMAX [Suspect]
     Active Substance: ALENDRONATE SODIUM
     Indication: OSTEOPOROSIS
     Dosage: FOSAMAX 70 MG ONCE WEEKLY AS A CURRENT MEDICATION ON 04/FEB/2002, THROUGHOUT 2003 AND 2004, AND ON 2
     Route: 048
     Dates: start: 20010905, end: 200510

REACTIONS (2)
  - Atypical femur fracture [Unknown]
  - Stress fracture [Unknown]
